FAERS Safety Report 9896283 (Version 2)
Quarter: 2014Q1

REPORT INFORMATION
  Report Type: Spontaneous
  Country: US (occurrence: US)
  Receive Date: 20140213
  Receipt Date: 20140213
  Transmission Date: 20141002
  Serious: No
  Sender: FDA-Public Use
  Company Number: US-BRISTOL-MYERS SQUIBB COMPANY-18818450

PATIENT
  Age: 48 Year
  Sex: Female
  Weight: 64.4 kg

DRUGS (1)
  1. ABATACEPT SUBQ INJECTION 125MG/ML [Suspect]
     Indication: SYSTEMIC LUPUS ERYTHEMATOSUS
     Dosage: RECENT DOSE:18APR2013?1DF:125MG/ML; DOSE: 06
     Route: 058
     Dates: start: 20130314

REACTIONS (6)
  - Nausea [Recovered/Resolved]
  - Pallor [Recovered/Resolved]
  - Feeling abnormal [Unknown]
  - Fatigue [Unknown]
  - Pain [Unknown]
  - Drug ineffective [Unknown]
